FAERS Safety Report 10090253 (Version 1)
Quarter: 2014Q2

REPORT INFORMATION
  Report Type: Spontaneous
  Country: US (occurrence: US)
  Receive Date: 20140421
  Receipt Date: 20140421
  Transmission Date: 20141212
  Serious: Yes (Hospitalization)
  Sender: FDA-Public Use
  Company Number: US-BAYER-2014-056076

PATIENT
  Age: 40 Year
  Sex: Female
  Weight: 74.38 kg

DRUGS (4)
  1. YASMIN [Suspect]
     Dosage: UNK
     Dates: end: 20101224
  2. MORPHINE [Concomitant]
     Dosage: 2 MG EVERY 4 HOURS
  3. PROTONIX [Concomitant]
  4. SYNTHROID [Concomitant]

REACTIONS (1)
  - Deep vein thrombosis [None]
